FAERS Safety Report 5967526-0 (Version None)
Quarter: 2008Q4

REPORT INFORMATION
  Report Type: 
  Country: None (occurrence: None)
  Receive Date: 20081125
  Receipt Date: 20081113
  Transmission Date: 20090506
  Serious: Yes (Hospitalization)
  Sender: FDA-Public Use
  Company Number: US-PFIZER INC-2008096476

PATIENT
  Sex: Male

DRUGS (11)
  1. ZYVOX [Suspect]
     Indication: DECUBITUS ULCER
     Route: 042
     Dates: start: 20081113
  2. VICODIN [Concomitant]
     Dosage: DAILY DOSE:50MG
  3. ATENOLOL [Concomitant]
     Dosage: DAILY DOSE:150MG
  4. CELEXA [Concomitant]
     Dosage: DAILY DOSE:10MG
  5. HEPARIN [Concomitant]
  6. INSULIN LENTE [Concomitant]
     Dosage: DAILY DOSE:40
  7. NOVOLOG [Concomitant]
  8. PREVACID [Concomitant]
  9. REGLAN [Concomitant]
  10. FLAGYL [Concomitant]
  11. SODIUM CHLORIDE 0.9% [Concomitant]

REACTIONS (5)
  - DEHYDRATION [None]
  - DIABETES MELLITUS [None]
  - EXTRAVASATION [None]
  - HYPERGLYCAEMIA [None]
  - URINARY TRACT INFECTION [None]
